FAERS Safety Report 6725718-7 (Version None)
Quarter: 2010Q2

REPORT INFORMATION
  Report Type: 
  Country: None (occurrence: None)
  Receive Date: 20100514
  Receipt Date: 20100510
  Transmission Date: 20101027
  Serious: Yes (Death)
  Sender: FDA-Public Use
  Company Number: JP-SANOFI-AVENTIS-2010SA026926

PATIENT
  Age: 64 Year
  Sex: Male

DRUGS (3)
  1. TAXOTERE [Suspect]
     Indication: NASOPHARYNGEAL CANCER RECURRENT
     Route: 041
     Dates: start: 20070730, end: 20080728
  2. KYTRIL [Concomitant]
     Indication: PREMEDICATION
     Dates: start: 20070730, end: 20080728
  3. DECADRON [Concomitant]
     Indication: PREMEDICATION
     Dates: start: 20070730, end: 20080728

REACTIONS (1)
  - INTERSTITIAL LUNG DISEASE [None]
